FAERS Safety Report 7452340-X (Version None)
Quarter: 2011Q2

REPORT INFORMATION
  Report Type: 
  Country: None (occurrence: None)
  Receive Date: 20110502
  Receipt Date: 20110425
  Transmission Date: 20111010
  Serious: Yes (Hospitalization, Other)
  Sender: FDA-Public Use
  Company Number: US-ABBOTT-11P-163-0708573-00

PATIENT
  Sex: Female
  Weight: 68.1 kg

DRUGS (2)
  1. SARAFEM [Concomitant]
     Indication: PRODUCT USED FOR UNKNOWN INDICATION
     Dosage: ONCE DAILY
  2. HUMIRA [Suspect]
     Indication: CROHN'S DISEASE
     Route: 058
     Dates: start: 20101117, end: 20110127

REACTIONS (13)
  - CHOLELITHIASIS [None]
  - CROHN'S DISEASE [None]
  - GALLBLADDER PAIN [None]
  - BILE DUCT STONE [None]
  - PELVIC PAIN [None]
  - GALLBLADDER DISORDER [None]
  - MUSCULOSKELETAL CHEST PAIN [None]
  - MUSCULAR WEAKNESS [None]
  - PAIN IN EXTREMITY [None]
  - APPENDICITIS [None]
  - ABDOMINAL PAIN [None]
  - FOOT FRACTURE [None]
  - NEPHROLITHIASIS [None]
